FAERS Safety Report 11754869 (Version 1)
Quarter: 2015Q4

REPORT INFORMATION
  Report Type: Spontaneous
  Country: US (occurrence: US)
  Receive Date: 20151119
  Receipt Date: 20151119
  Transmission Date: 20160304
  Serious: Yes (Other)
  Sender: FDA-Public Use
  Company Number: US-ASTELLAS-2015US037368

PATIENT
  Age: 69 Year
  Sex: Female

DRUGS (1)
  1. VESICARE [Suspect]
     Active Substance: SOLIFENACIN SUCCINATE
     Indication: POLLAKIURIA
     Route: 048
     Dates: start: 2014

REACTIONS (8)
  - Malaise [Recovering/Resolving]
  - Oropharyngeal pain [Recovering/Resolving]
  - Hip surgery [Unknown]
  - Diarrhoea [Recovering/Resolving]
  - Influenza [Recovering/Resolving]
  - Knee operation [Unknown]
  - Surgery [Unknown]
  - Colostomy [Unknown]

NARRATIVE: CASE EVENT DATE: 20151005
